FAERS Safety Report 17040723 (Version 3)
Quarter: 2019Q4

REPORT INFORMATION
  Report Type: Spontaneous
  Country: IT (occurrence: IT)
  Receive Date: 20191117
  Receipt Date: 20191126
  Transmission Date: 20200122
  Serious: Yes (Hospitalization, Other)
  Sender: FDA-Public Use
  Company Number: IT-BIOGEN-2019BI00805974

PATIENT
  Age: 35 Year
  Sex: Male

DRUGS (2)
  1. TECFIDERA [Suspect]
     Active Substance: DIMETHYL FUMARATE
     Dosage: MAINTENANCE
     Route: 048
     Dates: start: 20191029, end: 20191102
  2. TECFIDERA [Suspect]
     Active Substance: DIMETHYL FUMARATE
     Indication: MULTIPLE SCLEROSIS
     Route: 048

REACTIONS (7)
  - Drug-induced liver injury [Unknown]
  - Jaundice [Recovered/Resolved]
  - Ocular icterus [Not Recovered/Not Resolved]
  - Transaminases increased [Recovered/Resolved]
  - Hepatitis acute [Not Recovered/Not Resolved]
  - Asthenia [Not Recovered/Not Resolved]
  - Urine abnormality [Not Recovered/Not Resolved]

NARRATIVE: CASE EVENT DATE: 20191031
